FAERS Safety Report 14497537 (Version 1)
Quarter: 2018Q1

REPORT INFORMATION
  Report Type: Spontaneous
  Country: US (occurrence: US)
  Receive Date: 20180206
  Receipt Date: 20180206
  Transmission Date: 20180509
  Serious: Yes (Hospitalization)
  Sender: FDA-Public Use
  Company Number: None

PATIENT
  Age: 83 Year
  Sex: Female

DRUGS (15)
  1. ALPRAZOLAM. [Concomitant]
     Active Substance: ALPRAZOLAM
  2. LEVALBUTEROL. [Concomitant]
     Active Substance: LEVALBUTEROL
  3. LEVOFLOXACIN. [Concomitant]
     Active Substance: LEVOFLOXACIN
  4. BREO ELLIPTA INH [Concomitant]
  5. FUROSEMIDE. [Concomitant]
     Active Substance: FUROSEMIDE
  6. METOPROLOL TARTRATE. [Concomitant]
     Active Substance: METOPROLOL TARTRATE
  7. OMEPRAZOLE. [Concomitant]
     Active Substance: OMEPRAZOLE
  8. PREDNISONE. [Concomitant]
     Active Substance: PREDNISONE
  9. SIMVASTATIN. [Concomitant]
     Active Substance: SIMVASTATIN
  10. SILDENAFIL 20MG TABLET CAMBER [Suspect]
     Active Substance: SILDENAFIL
     Indication: PULMONARY ARTERIAL HYPERTENSION
     Route: 048
     Dates: start: 20141103
  11. CITALOPRAM [Concomitant]
     Active Substance: CITALOPRAM HYDROBROMIDE
  12. CLONIDINE. [Concomitant]
     Active Substance: CLONIDINE
  13. LEVOTHYROXIN [Concomitant]
     Active Substance: LEVOTHYROXINE
  14. POT CHLORIDE [Concomitant]
     Active Substance: POTASSIUM CHLORIDE
  15. ACETYLCYST [Concomitant]

REACTIONS (2)
  - Fall [None]
  - Head injury [None]

NARRATIVE: CASE EVENT DATE: 201801
